FAERS Safety Report 6592741-5 (Version None)
Quarter: 2010Q1

REPORT INFORMATION
  Report Type: 
  Country: None (occurrence: None)
  Receive Date: 20100212
  Receipt Date: 20100125
  Transmission Date: 20100710
  Serious: Yes (Life-Threatening)
  Sender: FDA-Public Use
  Company Number: PPC201000004

PATIENT
  Age: 34 Year
  Sex: Female

DRUGS (5)
  1. OXYTOCIN [Suspect]
     Indication: HAEMOSTASIS
     Dosage: (300 ML), INTRAVENOUS
     Route: 042
     Dates: start: 20100118, end: 20100118
  2. MARCAINE [Concomitant]
  3. EPIMORPH [Concomitant]
  4. FENTANYL-100 [Concomitant]
  5. ANCEF [Concomitant]

REACTIONS (1)
  - PROCEDURAL HYPOTENSION [None]
